FAERS Safety Report 11163718 (Version 1)
Quarter: 2015Q2

REPORT INFORMATION
  Report Type: Spontaneous
  Country: US (occurrence: None)
  Receive Date: 20150603
  Receipt Date: 20150603
  Transmission Date: 20150821
  Serious: Yes (Other)
  Sender: FDA-Public Use
  Company Number: None

PATIENT
  Age: 77 Year
  Sex: Male
  Weight: 68.04 kg

DRUGS (3)
  1. OMEPROZOLE [Concomitant]
     Active Substance: OMEPRAZOLE
  2. COPPERTONE WATER BABIES SPF 55 [Suspect]
     Active Substance: AVOBENZONE\HOMOSALATE\OCTISALATE\OCTOCRYLENE\OXYBENZONE
  3. ZANTAC [Concomitant]
     Active Substance: RANITIDINE HYDROCHLORIDE

REACTIONS (5)
  - Sunburn [None]
  - Rash [None]
  - Skin exfoliation [None]
  - Wrong technique in drug usage process [None]
  - Pruritus [None]

NARRATIVE: CASE EVENT DATE: 20150504
